FAERS Safety Report 5374077-3 (Version None)
Quarter: 2007Q2

REPORT INFORMATION
  Report Type: 
  Country: None (occurrence: None)
  Receive Date: 20070627
  Receipt Date: 20070612
  Transmission Date: 20071010
  Serious: Yes (Hospitalization, Other)
  Sender: FDA-Public Use
  Company Number: 2007US-07157

PATIENT
  Age: 86 Year
  Sex: Female

DRUGS (1)
  1. NITROFURANTOIN [Suspect]
     Indication: URINARY TRACT INFECTION
     Dosage: ORAL
     Route: 048
     Dates: start: 20070119, end: 20070122

REACTIONS (19)
  - ABDOMINAL PAIN [None]
  - ABDOMINAL PAIN UPPER [None]
  - DYSPEPSIA [None]
  - DYSPHAGIA [None]
  - DYSPNOEA [None]
  - FALL [None]
  - LARYNGOTRACHEAL OEDEMA [None]
  - OEDEMA PERIPHERAL [None]
  - OESOPHAGITIS [None]
  - PAIN [None]
  - PAIN IN EXTREMITY [None]
  - PANCREATIC ATROPHY [None]
  - PANCREATIC DISORDER [None]
  - PANCREATIC INSUFFICIENCY [None]
  - RASH [None]
  - SCAPULA FRACTURE [None]
  - UPPER LIMB FRACTURE [None]
  - WEIGHT DECREASED [None]
  - WRIST FRACTURE [None]
